FAERS Safety Report 7809908-8 (Version None)
Quarter: 2011Q4

REPORT INFORMATION
  Report Type: 
  Country: None (occurrence: None)
  Receive Date: 20111012
  Receipt Date: 20111004
  Transmission Date: 20120403
  Serious: Yes (Hospitalization, Other)
  Sender: FDA-Public Use
  Company Number: US-PURDUE-USA-2011-0075749

PATIENT
  Sex: Male

DRUGS (4)
  1. OXYCONTIN [Suspect]
     Indication: SUBSTANCE ABUSE
     Dosage: UNK, SEE TEXT
  2. HEROIN [Suspect]
     Indication: SUBSTANCE ABUSE
  3. COCAINE [Suspect]
     Indication: SUBSTANCE ABUSE
  4. OXYCONTIN [Suspect]
     Indication: PAIN

REACTIONS (3)
  - PULMONARY EMBOLISM [None]
  - SUBSTANCE ABUSE [None]
  - THROMBOSIS [None]
